FAERS Safety Report 8276391-0 (Version None)
Quarter: 2012Q2

REPORT INFORMATION
  Report Type: 
  Country: None (occurrence: None)
  Receive Date: 20120412
  Receipt Date: 20120410
  Transmission Date: 20120825
  Serious: Yes (Disabling)
  Sender: FDA-Public Use
  Company Number: DE-SANOFI-AVENTIS-2012SA024774

PATIENT
  Age: 66 Year
  Sex: Female
  Weight: 52 kg

DRUGS (1)
  1. ENOXAPARIN SODIUM [Suspect]
     Dosage: DOSE:20 MILLIGRAM(S)/MILLILITRE
     Route: 065
     Dates: start: 20111124, end: 20111224

REACTIONS (3)
  - NEURALGIA [None]
  - JOINT SWELLING [None]
  - NERVOUS SYSTEM DISORDER [None]
